FAERS Safety Report 7294523 (Version 2)
Quarter: 2015Q1

REPORT INFORMATION
  Report Type: Spontaneous
  Country: GB (occurrence: None)
  Receive Date: 20090908
  Receipt Date: 20150107
  Transmission Date: 20150721
  Serious: Yes (Life-Threatening, Hospitalization, Other)
  Sender: FDA-Public Use
  Company Number: 2009002109

PATIENT
  Age: 65 Year
  Sex: Female

DRUGS (12)
  1. OMEPRAZOLE. [Concomitant]
     Active Substance: OMEPRAZOLE
  2. RO 4858696 (IGF-1R ANTAGONIST) (RO 4858696 (IGF-1R ANTAGONIST)) INFUSION [Concomitant]
     Active Substance: TEPROTUMUMAB
  3. THYROXINE (LEVOTHYROXINE SODIUM) [Concomitant]
     Active Substance: LEVOTHYROXINE
  4. CITALOPRAM HYDROBROMIDE. [Concomitant]
     Active Substance: CITALOPRAM HYDROBROMIDE
  5. DEXAMETHASONE (DEXAMETHASONE) [Concomitant]
     Active Substance: DEXAMETHASONE
  6. ORAMORPH SR SUSTAINED RELEASE [Concomitant]
     Active Substance: MORPHINE SULFATE
  7. IMMODIUM (LOPERAMIDE HYDROCHLORIDE) [Concomitant]
  8. ZOPICLONE (ZOPICLONE) [Concomitant]
     Active Substance: ZOPICLONE
  9. FLUCONAZOLE. [Concomitant]
     Active Substance: FLUCONAZOLE
  10. TEMAZEPAM. [Concomitant]
     Active Substance: TEMAZEPAM
  11. TARCEVA [Suspect]
     Active Substance: ERLOTINIB HYDROCHLORIDE
     Indication: NON-SMALL CELL LUNG CANCER
     Dosage: (150 MG, QD), ORAL
     Route: 048
     Dates: start: 20090519, end: 20090526
  12. TRAMADOL HYDROCHLORIDE. [Concomitant]
     Active Substance: TRAMADOL HYDROCHLORIDE

REACTIONS (14)
  - Seizure [None]
  - Cerebral infarction [None]
  - Haemoglobin decreased [None]
  - Urinary tract infection [None]
  - Blister [None]
  - Back pain [None]
  - Mucosal inflammation [None]
  - Diarrhoea [None]
  - Platelet count decreased [None]
  - Electrocardiogram ST segment elevation [None]
  - Pain [None]
  - Cellulitis [None]
  - Disease progression [None]
  - Dysphagia [None]

NARRATIVE: CASE EVENT DATE: 20090613
